FAERS Safety Report 21452220 (Version 2)
Quarter: 2022Q4

REPORT INFORMATION
  Report Type: Spontaneous
  Country: NL (occurrence: NL)
  Receive Date: 20221013
  Receipt Date: 20221031
  Transmission Date: 20230113
  Serious: Yes (Other)
  Sender: FDA-Public Use
  Company Number: NL-TEVA-2022-NL-2816321

PATIENT
  Age: 20 Year
  Sex: Female

DRUGS (6)
  1. PREDNISONE [Suspect]
     Active Substance: PREDNISONE
     Indication: Disseminated tuberculosis
     Dosage: 25 MILLIGRAM DAILY;
     Route: 065
  2. PREDNISONE [Suspect]
     Active Substance: PREDNISONE
     Dosage: 80 MILLIGRAM DAILY;
     Route: 065
  3. ANAKINRA [Suspect]
     Active Substance: ANAKINRA
     Indication: Disseminated tuberculosis
     Dosage: 1 X 300 MG
     Route: 042
  4. ANAKINRA [Suspect]
     Active Substance: ANAKINRA
     Dosage: 3 X 100MG
     Route: 042
  5. ANAKINRA [Suspect]
     Active Substance: ANAKINRA
     Dosage: 3 X 200MG
     Route: 042
  6. INTERFERON GAMMA-1B [Suspect]
     Active Substance: INTERFERON GAMMA-1B
     Indication: Disseminated tuberculosis
     Route: 065

REACTIONS (2)
  - Drug ineffective [Unknown]
  - Neutropenia [Recovered/Resolved]
